FAERS Safety Report 21446104 (Version 2)
Quarter: 2022Q4

REPORT INFORMATION
  Report Type: Spontaneous
  Country: FR (occurrence: None)
  Receive Date: 20221012
  Receipt Date: 20221027
  Transmission Date: 20230113
  Serious: Yes (Hospitalization)
  Sender: FDA-Public Use
  Company Number: 2022A337946

PATIENT
  Age: 69 Year
  Sex: Female
  Weight: 50 kg

DRUGS (3)
  1. QUETIAPINE FUMARATE [Suspect]
     Active Substance: QUETIAPINE FUMARATE
     Indication: Toxicity to various agents
     Dosage: 7-8 CPS
     Route: 048
     Dates: start: 20220313, end: 20220313
  2. TRIMEPRAZINE [Suspect]
     Active Substance: TRIMEPRAZINE
     Indication: Toxicity to various agents
     Dosage: 7-8 CPS
     Route: 048
     Dates: start: 20220313, end: 20220313
  3. LAMICTAL [Suspect]
     Active Substance: LAMOTRIGINE
     Indication: Toxicity to various agents
     Dosage: 7-8 CPS
     Route: 048
     Dates: start: 20220313, end: 20220313

REACTIONS (4)
  - Intentional overdose [Recovered/Resolved]
  - Urinary incontinence [Recovered/Resolved]
  - Vomiting [Recovered/Resolved]
  - Tremor [Recovered/Resolved]

NARRATIVE: CASE EVENT DATE: 20220313
